FAERS Safety Report 15329989 (Version 1)
Quarter: 2018Q3

REPORT INFORMATION
  Report Type: Spontaneous
  Country: US (occurrence: US)
  Receive Date: 20180824
  Receipt Date: 20180824
  Transmission Date: 20181010
  Serious: Yes (Other)
  Sender: FDA-Public Use
  Company Number: None

PATIENT
  Age: 63 Year
  Sex: Male
  Weight: 117.9 kg

DRUGS (12)
  1. CAPSAICIN 0.025% CREAM [Concomitant]
  2. GABAPENTIN 600MG TAB [Concomitant]
  3. RIBAVIRIN. [Suspect]
     Active Substance: RIBAVIRIN
  4. HYDRALAZINE HCL 10MG [Concomitant]
  5. LACTULOSE 10GM/15ML ORAL [Concomitant]
  6. NORTRIPTYLINE HCL 10MG CAP [Concomitant]
  7. RIFAXIMIN 550MG TAB [Concomitant]
  8. FUROSEMIDE 40MG TAB [Concomitant]
  9. LIDOCAINE 5% OINT APPLY [Concomitant]
  10. EPCLUSA [Suspect]
     Active Substance: SOFOSBUVIR\VELPATASVIR
  11. AMILORIDE HCL 5MG TAB [Concomitant]
  12. AMMONIUM LACTATE 12% LOTION [Concomitant]

REACTIONS (3)
  - Hepatic cancer [None]
  - Splenomegaly [None]
  - Varices oesophageal [None]
